FAERS Safety Report 9355034 (Version 1)
Quarter: 2013Q2

REPORT INFORMATION
  Report Type: Spontaneous
  Country: GB (occurrence: GB)
  Receive Date: 20130619
  Receipt Date: 20130619
  Transmission Date: 20140414
  Serious: Yes (Other)
  Sender: FDA-Public Use
  Company Number: GB-009507513-1306GBR007751

PATIENT
  Age: 26 Year
  Sex: Female

DRUGS (2)
  1. NEXPLANON [Suspect]
     Indication: CONTRACEPTION
     Dosage: UNK
     Route: 059
     Dates: start: 20130520, end: 2013
  2. CERAZETTE [Concomitant]
     Dosage: UNK
     Route: 048
     Dates: start: 201203

REACTIONS (6)
  - Emotional disorder [Unknown]
  - Palpitations [Unknown]
  - Malaise [Unknown]
  - Pyrexia [Unknown]
  - Dizziness [Unknown]
  - Dizziness [Unknown]
